FAERS Safety Report 5684110-7 (Version None)
Quarter: 2008Q1

REPORT INFORMATION
  Report Type: 
  Country: None (occurrence: None)
  Receive Date: 20080328
  Receipt Date: 20070731
  Transmission Date: 20080703
  Serious: No
  Sender: FDA-Public Use
  Company Number: US-AMGEN-US236658

PATIENT
  Age: 56 Year
  Sex: Female

DRUGS (3)
  1. NEULASTA [Suspect]
     Indication: CHEMOTHERAPY
     Route: 058
     Dates: start: 20070701, end: 20070725
  2. ADRIAMYCIN PFS [Concomitant]
     Route: 065
  3. CYTOXAN [Concomitant]
     Route: 065

REACTIONS (8)
  - ANOREXIA [None]
  - DIZZINESS [None]
  - FATIGUE [None]
  - IMPAIRED WORK ABILITY [None]
  - LETHARGY [None]
  - MYALGIA [None]
  - PAIN [None]
  - STOMATITIS [None]
